FAERS Safety Report 16362134 (Version 1)
Quarter: 2019Q2

REPORT INFORMATION
  Report Type: Spontaneous
  Country: US (occurrence: US)
  Receive Date: 20190528
  Receipt Date: 20190528
  Transmission Date: 20190711
  Serious: No
  Sender: FDA-Public Use
  Company Number: US-SUNOVION-2019SUN002057

PATIENT
  Sex: Female

DRUGS (1)
  1. LATUDA [Suspect]
     Active Substance: LURASIDONE HYDROCHLORIDE
     Dosage: UNK
     Route: 048

REACTIONS (6)
  - Impaired self-care [Unknown]
  - Loss of libido [Unknown]
  - Apathy [Unknown]
  - Depressed mood [Unknown]
  - Feeling jittery [Unknown]
  - Dyskinesia [Unknown]
